FAERS Safety Report 7992975-9 (Version None)
Quarter: 2011Q4

REPORT INFORMATION
  Report Type: 
  Country: None (occurrence: None)
  Receive Date: 20111219
  Receipt Date: 20110628
  Transmission Date: 20120403
  Serious: Yes (Other)
  Sender: FDA-Public Use
  Company Number: US-ASTRAZENECA-2011SE19350

PATIENT
  Age: 31 Year
  Sex: Male
  Weight: 82.6 kg

DRUGS (1)
  1. CRESTOR [Suspect]
     Indication: HYPERCHOLESTEROLAEMIA
     Route: 048
     Dates: start: 20101201, end: 20110404

REACTIONS (1)
  - BLOOD CREATINE PHOSPHOKINASE INCREASED [None]
